FAERS Safety Report 11096148 (Version 1)
Quarter: 2015Q2

REPORT INFORMATION
  Report Type: Spontaneous
  Country: US (occurrence: US)
  Receive Date: 20150507
  Receipt Date: 20150507
  Transmission Date: 20150821
  Serious: No
  Sender: FDA-Public Use
  Company Number: US-AMGEN-USASP2015044086

PATIENT
  Age: 50 Year
  Sex: Female

DRUGS (1)
  1. ENBREL [Suspect]
     Active Substance: ETANERCEPT
     Indication: RHEUMATOID ARTHRITIS
     Dosage: UNK
     Route: 065
     Dates: start: 20011101

REACTIONS (4)
  - Elbow operation [Recovered/Resolved]
  - Muscle injury [Recovered/Resolved]
  - Skin discolouration [Recovered/Resolved]
  - Gait disturbance [Recovered/Resolved]
